FAERS Safety Report 4887477-2 (Version None)
Quarter: 2006Q1

REPORT INFORMATION
  Report Type: 
  Country: None (occurrence: None)
  Receive Date: 20060118
  Receipt Date: 20050517
  Transmission Date: 20060701
  Serious: Yes (Other)
  Sender: FDA-Public Use
  Company Number: 805#9#2005-00045

PATIENT
  Age: 2 Day
  Sex: Female

DRUGS (9)
  1. ALPROSTADIL [Suspect]
     Dosage: 8 NG, KG. MIN, 4 NG/KG/MIN, 2 NG/KG/MIN; INTRAVENOUS DRIP
     Route: 041
     Dates: start: 20050203, end: 20050204
  2. ALPROSTADIL [Suspect]
     Dosage: 8 NG, KG. MIN, 4 NG/KG/MIN, 2 NG/KG/MIN; INTRAVENOUS DRIP
     Route: 041
     Dates: start: 20050204, end: 20050204
  3. ALPROSTADIL [Suspect]
     Dosage: 8 NG, KG. MIN, 4 NG/KG/MIN, 2 NG/KG/MIN; INTRAVENOUS DRIP
     Route: 041
     Dates: start: 20050204, end: 20050210
  4. VECURONIUM BROMIDE [Concomitant]
  5. MIDAZOLAM [Concomitant]
  6. HUMAN-SERUM-ALBUMIN (ALBUMIN NORMAL NUMAN SERUM) [Concomitant]
  7. SULBACTAM-SODIUM/AMPICILLIN-SODIUM (AMPICILLIN SODIUM, SULBACTAM SODIU [Concomitant]
  8. POTASSIUM CHLORIDE [Concomitant]
  9. CALCIUM GLUCONATE [Concomitant]

REACTIONS (1)
  - APNOEIC ATTACK [None]
